FAERS Safety Report 5163966-0 (Version None)
Quarter: 2006Q4

REPORT INFORMATION
  Report Type: 
  Country: None (occurrence: None)
  Receive Date: 20061204
  Receipt Date: 20061120
  Transmission Date: 20070319
  Serious: Yes (Death, Hospitalization)
  Sender: FDA-Public Use
  Company Number: ESWYE612121NOV06

PATIENT
  Sex: Male

DRUGS (7)
  1. ENBREL [Suspect]
     Indication: RHEUMATOID ARTHRITIS
     Route: 058
     Dates: start: 20040401, end: 20060815
  2. ASPIRIN [Concomitant]
     Indication: MYOCARDIAL ISCHAEMIA
     Route: 048
     Dates: start: 20060201
  3. FLUVASTATIN [Concomitant]
     Dosage: UNKNOWN
     Dates: start: 20060201
  4. BISOPROLOL FUMARATE [Concomitant]
     Dosage: UNKNOWN
     Dates: start: 20060201
  5. COAPROVEL [Concomitant]
     Dosage: UNKNOWN
     Dates: start: 20060201
  6. METHOTREXATE [Concomitant]
     Indication: RHEUMATOID ARTHRITIS
     Route: 048
     Dates: start: 20050214
  7. CLOPIDOGREL [Concomitant]
     Dosage: UNKNOWN
     Dates: start: 20060201

REACTIONS (4)
  - ESCHERICHIA BACTERAEMIA [None]
  - ESCHERICHIA URINARY TRACT INFECTION [None]
  - LUNG NEOPLASM MALIGNANT [None]
  - URINARY TRACT INFECTION [None]
